FAERS Safety Report 22283453 (Version 8)
Quarter: 2023Q2

REPORT INFORMATION
  Report Type: Spontaneous
  Country: US (occurrence: US)
  Receive Date: 20230504
  Receipt Date: 20230620
  Transmission Date: 20230722
  Serious: No
  Sender: FDA-Public Use
  Company Number: US-UNITED THERAPEUTICS-UNT-2023-012139

PATIENT
  Age: 60 Year
  Sex: Female
  Weight: 89.796 kg

DRUGS (13)
  1. REMODULIN [Suspect]
     Active Substance: TREPROSTINIL
     Indication: Pulmonary arterial hypertension
     Dosage: 0.047 ?G/KG, CONTINUING
     Route: 041
  2. REMODULIN [Suspect]
     Active Substance: TREPROSTINIL
     Dosage: 51 ML PER (806 MINUTE)
     Route: 041
  3. REMODULIN [Suspect]
     Active Substance: TREPROSTINIL
     Dosage: 0.043 ?G/KG, CONTINUING
     Route: 041
  4. REMODULIN [Suspect]
     Active Substance: TREPROSTINIL
     Dosage: 0.051 ?G/KG, CONTINUING
     Route: 041
  5. REMODULIN [Suspect]
     Active Substance: TREPROSTINIL
     Dosage: 0.061 ?G/KG, CONTINUING
     Route: 041
  6. REMODULIN [Suspect]
     Active Substance: TREPROSTINIL
     Dosage: 0.069 ?G/KG, CONTINUING
     Route: 041
  7. REMODULIN [Suspect]
     Active Substance: TREPROSTINIL
     Dosage: 0.083 ?G/KG, CONTINUING
     Route: 041
  8. REMODULIN [Suspect]
     Active Substance: TREPROSTINIL
     Dosage: 0.085 ?G/KG, CONTINUING
     Route: 041
  9. REMODULIN [Suspect]
     Active Substance: TREPROSTINIL
     Dosage: UNK, CONTINUING
     Route: 041
     Dates: start: 202303
  10. LETAIRIS [Suspect]
     Active Substance: AMBRISENTAN
     Indication: Pulmonary arterial hypertension
     Dosage: 10 MG, QD
     Route: 065
     Dates: start: 201805
  11. ADCIRCA [Concomitant]
     Active Substance: TADALAFIL
     Indication: Pulmonary arterial hypertension
     Dosage: 40 MG, QD
     Route: 065
     Dates: start: 202104
  12. ADCIRCA [Concomitant]
     Active Substance: TADALAFIL
     Dosage: UNK
     Route: 065
     Dates: start: 202009
  13. GABAPENTIN [Concomitant]
     Active Substance: GABAPENTIN
     Indication: Product used for unknown indication
     Dosage: UNK
     Route: 065

REACTIONS (18)
  - Vomiting [Recovering/Resolving]
  - Illness [Unknown]
  - Fluid retention [Unknown]
  - Injection site erythema [Unknown]
  - Dyspnoea [Not Recovered/Not Resolved]
  - Injection site pruritus [Unknown]
  - Headache [Unknown]
  - Weight increased [Unknown]
  - Peripheral swelling [Not Recovered/Not Resolved]
  - Injection site reaction [Unknown]
  - Erythema [Unknown]
  - Swelling face [Unknown]
  - Sunburn [Unknown]
  - Oedema [Unknown]
  - Diarrhoea [Recovering/Resolving]
  - Gastric disorder [Unknown]
  - Swelling [Unknown]
  - Environmental exposure [Unknown]

NARRATIVE: CASE EVENT DATE: 20230201
